FAERS Safety Report 8081271-X (Version None)
Quarter: 2012Q1

REPORT INFORMATION
  Report Type: 
  Country: None (occurrence: None)
  Receive Date: 20120130
  Receipt Date: 20120126
  Transmission Date: 20120608
  Serious: Yes (Life-Threatening)
  Sender: FDA-Public Use
  Company Number: BE-ABBOTT-12P-013-0898237-00

PATIENT
  Age: 88 Year

DRUGS (1)
  1. LEUPROLIDE ACETATE [Suspect]
     Indication: PROSTATE CANCER
     Dates: start: 20090930, end: 20120126

REACTIONS (1)
  - GENERAL PHYSICAL HEALTH DETERIORATION [None]
